FAERS Safety Report 8972098 (Version 3)
Quarter: 2013Q1

REPORT INFORMATION
  Report Type: Spontaneous
  Country: US (occurrence: US)
  Receive Date: 20121218
  Receipt Date: 20130131
  Transmission Date: 20140127
  Serious: Yes (Other)
  Sender: FDA-Public Use
  Company Number: US-PFIZER INC-2012308536

PATIENT
  Age: 39 Year
  Sex: Female
  Weight: 89.34 kg

DRUGS (7)
  1. LYRICA [Suspect]
     Indication: FIBROMYALGIA
     Dosage: 25 MG, UNK
     Route: 048
     Dates: start: 201202, end: 2012
  2. LYRICA [Suspect]
     Dosage: UNK
     Route: 048
     Dates: start: 201205
  3. LYRICA [Suspect]
     Dosage: 300 MG, 2X/DAY
     Route: 048
     Dates: start: 2012
  4. FLEXERIL [Concomitant]
     Dosage: 5 MG, BID, AS NEEDED
     Route: 048
     Dates: end: 201211
  5. LASIX [Concomitant]
     Indication: SWELLING
     Dosage: 20 MG, QD, AS NEEDED
     Route: 048
     Dates: end: 201211
  6. VITAMIN D2 [Concomitant]
     Dosage: 1 CAPSULE, 3X/WEEK
     Route: 048
     Dates: end: 201211
  7. ACYCLOVIR [Concomitant]
     Dosage: 200 MG, UNK
     Dates: end: 201211

REACTIONS (11)
  - Vision blurred [Unknown]
  - Diplopia [Unknown]
  - Drug ineffective [Unknown]
  - Local swelling [Recovered/Resolved]
  - Local swelling [Recovered/Resolved]
  - Weight increased [Unknown]
  - Food craving [Unknown]
  - Dysgeusia [Unknown]
  - Vitamin D decreased [Unknown]
  - Alopecia [Unknown]
  - Euphoric mood [Unknown]
